FAERS Safety Report 5523198-0 (Version None)
Quarter: 2007Q4

REPORT INFORMATION
  Report Type: 
  Country: None (occurrence: None)
  Receive Date: 20071116
  Receipt Date: 20071116
  Transmission Date: 20080405
  Serious: Yes (Other)
  Sender: FDA-Public Use
  Company Number: None

PATIENT
  Age: 55 Year
  Sex: Female
  Weight: 63.05 kg

DRUGS (1)
  1. AVELOX [Suspect]
     Indication: SINUSITIS
     Dosage: 1 PILL 1 OR 2 TIMES A DAY PO; ONLY TOOK ONE PILL
     Route: 048
     Dates: start: 20060314, end: 20060314

REACTIONS (18)
  - ARTHRALGIA [None]
  - BEDRIDDEN [None]
  - CONTUSION [None]
  - DRY EYE [None]
  - EATING DISORDER [None]
  - GAIT DISTURBANCE [None]
  - GASTRIC DISORDER [None]
  - HEADACHE [None]
  - JOINT STIFFNESS [None]
  - LEUKAEMIA [None]
  - MUSCULOSKELETAL PAIN [None]
  - MUSCULOSKELETAL STIFFNESS [None]
  - NECK PAIN [None]
  - PAIN IN EXTREMITY [None]
  - PETECHIAE [None]
  - RASH PRURITIC [None]
  - TENDON DISORDER [None]
  - WEIGHT DECREASED [None]
